FAERS Safety Report 8202884-8 (Version None)
Quarter: 2012Q1

REPORT INFORMATION
  Report Type: 
  Country: None (occurrence: None)
  Receive Date: 20120312
  Receipt Date: 20120312
  Transmission Date: 20120608
  Serious: Yes (Other)
  Sender: FDA-Public Use
  Company Number: None

PATIENT
  Sex: Male
  Weight: 15.422 kg

DRUGS (3)
  1. BROMFED DM SYP MOR [Suspect]
     Indication: COUGH
     Dosage: 3/4 TEASPOONFUL
     Route: 048
     Dates: start: 20100714, end: 20120311
  2. BROMFED DM SYP MOR [Suspect]
     Indication: NASOPHARYNGITIS
     Dosage: 3/4 TEASPOONFUL
     Route: 048
     Dates: start: 20100714, end: 20120311
  3. BROMFED DM SYP MOR [Suspect]
     Indication: HYPERSENSITIVITY
     Dosage: 3/4 TEASPOONFUL
     Route: 048
     Dates: start: 20100714, end: 20120311

REACTIONS (1)
  - ALOPECIA AREATA [None]
